FAERS Safety Report 8951385 (Version 1)
Quarter: 2012Q4

REPORT INFORMATION
  Report Type: Spontaneous
  Country: ES (occurrence: None)
  Receive Date: 20121129
  Receipt Date: 20121129
  Transmission Date: 20130627
  Serious: Yes (Hospitalization)
  Sender: FDA-Public Use
  Company Number: IMP_06085_2012

PATIENT
  Age: 59 Year
  Sex: Female

DRUGS (1)
  1. CHLOROQUINE [Suspect]
     Indication: SYSTEMIC LUPUS ERYTHEMATOSUS
     Dosage: (250 mg 6 days a week, 936 g cumulative)

REACTIONS (9)
  - Ocular toxicity [None]
  - Maculopathy [None]
  - Colour vision tests abnormal [None]
  - Scotoma [None]
  - Fatigue [None]
  - Atrioventricular block complete [None]
  - Electrocardiogram QRS complex prolonged [None]
  - Pallor [None]
  - Cardiotoxicity [None]
